FAERS Safety Report 23863587 (Version 1)
Quarter: 2024Q2

REPORT INFORMATION
  Report Type: Report from Study
  Country: GB (occurrence: GB)
  Receive Date: 20240516
  Receipt Date: 20240516
  Transmission Date: 20240715
  Serious: Yes (Other)
  Sender: FDA-Public Use
  Company Number: GB-002147023-NVSC2019GB020701

PATIENT
  Sex: Female

DRUGS (2)
  1. ERELZI [Suspect]
     Active Substance: ETANERCEPT-SZZS
     Dosage: 50MG/1ML
     Route: 058
     Dates: start: 201902
  2. ERELZI [Suspect]
     Active Substance: ETANERCEPT-SZZS
     Indication: Prostatic specific antigen
     Dosage: 50 MG, QW
     Route: 058

REACTIONS (3)
  - Neoplasm malignant [Unknown]
  - Malaise [Unknown]
  - Product dose omission issue [Unknown]
